FAERS Safety Report 7423114-0 (Version None)
Quarter: 2011Q2

REPORT INFORMATION
  Report Type: 
  Country: None (occurrence: None)
  Receive Date: 20110419
  Receipt Date: 20110224
  Transmission Date: 20111010
  Serious: No
  Sender: FDA-Public Use
  Company Number: US-TYCO HEALTHCARE/MALLINCKRODT-T201100533

PATIENT
  Age: 9 Year
  Sex: Male

DRUGS (1)
  1. METHYLIN [Suspect]
     Dosage: UNK

REACTIONS (2)
  - FEELING HOT [None]
  - ERYTHEMA [None]
